FAERS Safety Report 9075997 (Version 1)
Quarter: 2013Q1

REPORT INFORMATION
  Report Type: Report from Study
  Country: IL (occurrence: US)
  Receive Date: 20130129
  Receipt Date: 20130129
  Transmission Date: 20140127
  Serious: No
  Sender: FDA-Public Use
  Company Number: US-ABBOTT-12P-163-0935948-00

PATIENT
  Age: 58 None
  Sex: Male
  Weight: 85.35 kg

DRUGS (5)
  1. HUMIRA 40 MG/0.8 ML PEN [Suspect]
     Indication: PSORIATIC ARTHROPATHY
     Dates: start: 201012, end: 20120427
  2. COUMADIN [Concomitant]
     Indication: ANTICOAGULANT THERAPY
  3. DIOVAN [Concomitant]
     Indication: HYPERTENSION
  4. SULFASALAZINE [Concomitant]
     Indication: CROHN^S DISEASE
     Dosage: 500MG
  5. SIMVASTATIN [Concomitant]
     Indication: BLOOD CHOLESTEROL INCREASED

REACTIONS (2)
  - Tachycardia [Recovered/Resolved]
  - Tachycardia [Recovered/Resolved]
